FAERS Safety Report 16444005 (Version 1)
Quarter: 2019Q2

REPORT INFORMATION
  Report Type: Spontaneous
  Country: RO (occurrence: RO)
  Receive Date: 20190618
  Receipt Date: 20190618
  Transmission Date: 20190711
  Serious: Yes (Other)
  Sender: FDA-Public Use
  Company Number: RO-SUN PHARMACEUTICAL INDUSTRIES LTD-2019RR-210747

PATIENT
  Age: 44 Year
  Sex: Male

DRUGS (4)
  1. ACENOCOUMAROL [Suspect]
     Active Substance: ACENOCOUMAROL
     Indication: ANTIPLATELET THERAPY
     Route: 065
  2. CLOPIDOGREL [Suspect]
     Active Substance: CLOPIDOGREL BISULFATE
     Indication: ANTIPLATELET THERAPY
     Route: 065
  3. ASPIRIN. [Suspect]
     Active Substance: ASPIRIN
     Indication: ANTIPLATELET THERAPY
     Route: 065
  4. HEPARIN LMW [Suspect]
     Active Substance: UNSPECIFIED INGREDIENT
     Indication: ANTIPLATELET THERAPY
     Route: 065

REACTIONS (2)
  - Drug ineffective [Unknown]
  - Ischaemic stroke [Unknown]
